FAERS Safety Report 6403360-5 (Version None)
Quarter: 2009Q4

REPORT INFORMATION
  Report Type: 
  Country: None (occurrence: None)
  Receive Date: 20091016
  Receipt Date: 20091006
  Transmission Date: 20100525
  Serious: Yes (Hospitalization)
  Sender: FDA-Public Use
  Company Number: SE-ROCHE-658625

PATIENT
  Sex: Male
  Weight: 83 kg

DRUGS (7)
  1. CELLCEPT [Suspect]
     Indication: GLOMERULONEPHRITIS MEMBRANOUS
     Route: 048
     Dates: start: 20000923, end: 20090924
  2. CELLCEPT [Suspect]
     Dosage: LAST 4 YEARS DOSE: 500 MGX2
     Route: 048
  3. MEDROL [Concomitant]
     Indication: GLOMERULONEPHRITIS MEMBRANOUS
     Route: 048
     Dates: start: 20000901
  4. SIMVASTATIN [Concomitant]
     Route: 048
     Dates: start: 19990101
  5. ATACAND [Concomitant]
     Indication: HYPERTENSION
     Route: 048
     Dates: start: 20000101
  6. EMCONCOR [Concomitant]
     Indication: HYPERTENSION
     Route: 048
     Dates: start: 20050101
  7. TROMBYL [Concomitant]
     Indication: INFARCTION
     Route: 048
     Dates: start: 19990101

REACTIONS (1)
  - AMYOTROPHIC LATERAL SCLEROSIS [None]
